FAERS Safety Report 4610440-3 (Version None)
Quarter: 2005Q1

REPORT INFORMATION
  Report Type: 
  Country: None (occurrence: None)
  Receive Date: 20050314
  Receipt Date: 20050301
  Transmission Date: 20050727
  Serious: Yes (Hospitalization, Other)
  Sender: FDA-Public Use
  Company Number: 2004095770

PATIENT
  Age: 68 Year
  Sex: Male
  Weight: 68.9467 kg

DRUGS (6)
  1. CELEBREX [Suspect]
     Indication: OSTEOARTHRITIS
     Dosage: 200 MG (200 MG, 1 IN 1 D), ORAL
     Route: 048
     Dates: start: 20021104, end: 20041027
  2. ASPIRIN [Suspect]
     Indication: ISCHAEMIC HEART DISEASE PROPHYLAXIS
     Dosage: 81 MG (81 MG, 1 IN 1 D), ORAL
     Route: 048
     Dates: start: 19991026, end: 20041027
  3. ATORVASTATIN (ATORVASTATIN) [Concomitant]
  4. FENOFIBRATE [Concomitant]
  5. VENLAFAXINE HCL [Concomitant]
  6. CENTRUM SILVER (ASCORBIC ACID, CALCIUM, MINERALS NOS, RETINOL, TOCOPHE [Concomitant]

REACTIONS (11)
  - ASTHENIA [None]
  - DEFAECATION URGENCY [None]
  - DIZZINESS [None]
  - DUODENITIS [None]
  - GASTRIC ULCER [None]
  - MELAENA [None]
  - NODULE [None]
  - OESOPHAGEAL DISORDER [None]
  - OESOPHAGITIS [None]
  - OSTEOARTHRITIS [None]
  - UPPER GASTROINTESTINAL HAEMORRHAGE [None]
